FAERS Safety Report 24748616 (Version 1)
Quarter: 2024Q4

REPORT INFORMATION
  Report Type: Spontaneous
  Country: US (occurrence: US)
  Receive Date: 20241218
  Receipt Date: 20241218
  Transmission Date: 20250115
  Serious: Yes (Other)
  Sender: ALEXION PHARMACEUTICALS
  Company Number: US-AstraZeneca-CH-00765705AM

PATIENT

DRUGS (4)
  1. IMFINZI [Suspect]
     Active Substance: DURVALUMAB
     Route: 065
  2. IMFINZI [Suspect]
     Active Substance: DURVALUMAB
     Route: 065
  3. IMFINZI [Suspect]
     Active Substance: DURVALUMAB
     Route: 065
  4. IMFINZI [Suspect]
     Active Substance: DURVALUMAB
     Route: 065

REACTIONS (16)
  - Neuropathy peripheral [Unknown]
  - Precancerous skin lesion [Unknown]
  - Drug intolerance [Unknown]
  - Asthenia [Unknown]
  - Pain [Unknown]
  - Brain fog [Unknown]
  - Myalgia [Unknown]
  - Fatigue [Unknown]
  - Pruritus [Unknown]
  - Alopecia [Unknown]
  - Arthralgia [Unknown]
  - Amnesia [Unknown]
  - Scab [Unknown]
  - Skin exfoliation [Unknown]
  - Lacrimation increased [Unknown]
  - Allergy to surgical sutures [Unknown]
